FAERS Safety Report 18223623 (Version 3)
Quarter: 2023Q1

REPORT INFORMATION
  Report Type: Spontaneous
  Country: CO (occurrence: CO)
  Receive Date: 20200902
  Receipt Date: 20230112
  Transmission Date: 20230418
  Serious: Yes (Death, Life-Threatening, Hospitalization, Other)
  Sender: FDA-Public Use
  Company Number: CO-LUPIN PHARMACEUTICALS INC.-2020-05301

PATIENT
  Age: 18 Year
  Sex: Female

DRUGS (8)
  1. AMLODIPINE [Suspect]
     Active Substance: AMLODIPINE BESYLATE
     Indication: Product used for unknown indication
     Dosage: 60 DOSAGE FORM (INGESTING 60 AMLODIPINE 10MG TABLETS IN A SELF-INFLICTED ATTEMPT)
     Route: 048
  2. CALCIUM [Suspect]
     Active Substance: CALCIUM
     Indication: Blood pressure decreased
     Dosage: UNK (AT 10%, ONE AMPOULE EVERY 8 HOURS)
     Route: 065
  3. CALCIUM [Suspect]
     Active Substance: CALCIUM
     Dosage: UNK (INFUSION AT 1.2 ML/KG/HOUR)
     Route: 065
  4. METHYLENE BLUE [Suspect]
     Active Substance: METHYLENE BLUE
     Indication: Renal impairment
     Dosage: UNK (TWO SUBSEQUENT DOSES 2 MILLIGRAM/KILOGRAM)
     Route: 065
  5. METHYLENE BLUE [Suspect]
     Active Substance: METHYLENE BLUE
     Indication: Hyperlactacidaemia
  6. VASOPRESSIN [Suspect]
     Active Substance: VASOPRESSIN
     Indication: Blood pressure decreased
     Dosage: UNK (DOSE: 2.4 U/H)
     Route: 065
  7. NOREPINEPHRINE [Suspect]
     Active Substance: NOREPINEPHRINE
     Indication: Blood pressure decreased
     Dosage: UNK (STARTED AT 0.5 MCG/KG/MINUTE TITRATED)
     Route: 065
  8. INSULIN PORK\INSULIN PURIFIED PORK [Suspect]
     Active Substance: INSULIN PORK\INSULIN PURIFIED PORK
     Indication: Hypoperfusion
     Dosage: UNK (CRYSTALLINE INSULIN (INSULIN ZINC SUSPENSION CRYSTALLINE) 1 IU/KG IN 0.5 G/KG DEXTROSE AT 5% OR
     Route: 065

REACTIONS (6)
  - Intentional overdose [Fatal]
  - Drug ineffective [Unknown]
  - Blood pressure decreased [Unknown]
  - Hyperlactacidaemia [Unknown]
  - Renal impairment [Unknown]
  - Hypoperfusion [Unknown]
